FAERS Safety Report 8042581-5 (Version None)
Quarter: 2012Q1

REPORT INFORMATION
  Report Type: 
  Country: None (occurrence: None)
  Receive Date: 20120112
  Receipt Date: 20111228
  Transmission Date: 20120608
  Serious: Yes (Death)
  Sender: FDA-Public Use
  Company Number: US-UCBSA-049329

PATIENT
  Age: 66 Year
  Sex: Male

DRUGS (6)
  1. ACETAMINOPHEN AND HYDROCODONE BITARTRATE [Suspect]
  2. METHAMPHETAMINE [Suspect]
  3. DIAZEPAM [Suspect]
  4. OXYMORPHONE [Suspect]
  5. MIRTAZAPINE [Suspect]
  6. TRAZODONE HCL [Suspect]

REACTIONS (3)
  - CARDIAC ARREST [None]
  - DRUG ABUSE [None]
  - RESPIRATORY ARREST [None]
